FAERS Safety Report 7151776-4 (Version None)
Quarter: 2010Q4

REPORT INFORMATION
  Report Type: 
  Country: None (occurrence: None)
  Receive Date: 20101210
  Receipt Date: 20101203
  Transmission Date: 20110411
  Serious: Yes (Life-Threatening, Other)
  Sender: FDA-Public Use
  Company Number: CA-US-EMD SERONO, INC.-7030596

PATIENT
  Sex: Female

DRUGS (4)
  1. REBIF [Suspect]
     Indication: RELAPSING-REMITTING MULTIPLE SCLEROSIS
     Dates: start: 20030117, end: 20040415
  2. REBIF [Suspect]
     Dates: start: 20040922, end: 20061201
  3. REBIF [Suspect]
     Dates: start: 20061211, end: 20080226
  4. REBIF [Suspect]
     Dates: start: 20080226

REACTIONS (1)
  - LUNG NEOPLASM MALIGNANT [None]
